FAERS Safety Report 11485962 (Version 3)
Quarter: 2017Q2

REPORT INFORMATION
  Report Type: Spontaneous
  Country: NZ (occurrence: NZ)
  Receive Date: 20150910
  Receipt Date: 20170505
  Transmission Date: 20170829
  Serious: Yes (Disabling, Other)
  Sender: FDA-Public Use
  Company Number: NZ-SUN PHARMACEUTICAL INDUSTRIES LTD-2015RR-102767

PATIENT
  Age: 55 Year
  Sex: Male

DRUGS (2)
  1. ALENDRONIC ACID [Suspect]
     Active Substance: ALENDRONIC ACID
     Indication: OSTEOPENIA
     Dosage: 70 MG, 1/WEEK
     Route: 065
  2. ALENDRONIC ACID [Suspect]
     Active Substance: ALENDRONIC ACID
     Indication: OSTEOPENIA
     Dosage: 70 MG, 2/WEEK (FORTNIGHTLY)
     Route: 065

REACTIONS (3)
  - Osteomalacia [Recovering/Resolving]
  - Condition aggravated [Unknown]
  - Fracture [Unknown]
